FAERS Safety Report 25214509 (Version 1)
Quarter: 2025Q2

REPORT INFORMATION
  Report Type: Spontaneous
  Country: US (occurrence: US)
  Receive Date: 20250418
  Receipt Date: 20250418
  Transmission Date: 20250717
  Serious: No
  Sender: SANOFI AVENTIS
  Company Number: US-SANOFI-02489118

PATIENT
  Age: 37 Year
  Sex: Male

DRUGS (2)
  1. FABRAZYME [Suspect]
     Active Substance: AGALSIDASE BETA
     Dates: end: 20250228
  2. FABRAZYME [Suspect]
     Active Substance: AGALSIDASE BETA
     Dates: start: 2025

REACTIONS (1)
  - Illness [Unknown]
